FAERS Safety Report 7257313-8 (Version None)
Quarter: 2011Q1

REPORT INFORMATION
  Report Type: 
  Country: None (occurrence: None)
  Receive Date: 20110129
  Receipt Date: 20100625
  Transmission Date: 20110831
  Serious: No
  Sender: FDA-Public Use
  Company Number: US-ABBOTT-10P-163-0654192-00

PATIENT
  Age: 53 Year
  Sex: Female

DRUGS (5)
  1. PRAVASTATIN [Concomitant]
     Indication: BLOOD CHOLESTEROL
     Dosage: AT BEDTIME
  2. HUMIRA [Suspect]
     Indication: PSORIASIS
     Dosage: STARTING DOSE
     Dates: start: 20100611
  3. ACTONEL-CHLOR [Concomitant]
     Indication: HYPERTENSION
  4. CLOBETASOL 0.05% [Concomitant]
     Indication: RASH
  5. HUMIRA [Suspect]
     Dates: start: 20100619, end: 20100619

REACTIONS (2)
  - RASH GENERALISED [None]
  - DRUG HYPERSENSITIVITY [None]
